FAERS Safety Report 7229956-9 (Version None)
Quarter: 2011Q1

REPORT INFORMATION
  Report Type: 
  Country: None (occurrence: None)
  Receive Date: 20110117
  Receipt Date: 20110110
  Transmission Date: 20110831
  Serious: Yes (Hospitalization)
  Sender: FDA-Public Use
  Company Number: US-ELI_LILLY_AND_COMPANY-US201011003180

PATIENT
  Age: 70 Year
  Sex: Male

DRUGS (1)
  1. HUMULIN 70/30 [Suspect]
     Dosage: UNK, UNKNOWN

REACTIONS (2)
  - VASCULAR GRAFT [None]
  - BLOOD GLUCOSE ABNORMAL [None]
